FAERS Safety Report 18565485 (Version 2)
Quarter: 2021Q1

REPORT INFORMATION
  Report Type: Report from Study
  Country: IT (occurrence: IT)
  Receive Date: 20201201
  Receipt Date: 20210317
  Transmission Date: 20210419
  Serious: Yes (Death)
  Sender: FDA-Public Use
  Company Number: IT-PFIZER INC-2020469583

PATIENT

DRUGS (1)
  1. IRINOTECAN HCL [Suspect]
     Active Substance: IRINOTECAN HYDROCHLORIDE
     Indication: COLORECTAL CANCER METASTATIC
     Dosage: 90?MINUTE IV INFUSION, EVERY 3 WEEKS
     Route: 042

REACTIONS (1)
  - Febrile neutropenia [Fatal]
